FAERS Safety Report 7313856-X (Version None)
Quarter: 2011Q1

REPORT INFORMATION
  Report Type: 
  Country: None (occurrence: None)
  Receive Date: 20110225
  Receipt Date: 20110224
  Transmission Date: 20110831
  Serious: No
  Sender: FDA-Public Use
  Company Number: US-PFIZER INC-2010159776

PATIENT
  Sex: Male
  Weight: 83.9 kg

DRUGS (11)
  1. METOPROLOL [Concomitant]
     Indication: HYPERTENSION
     Dosage: 50 MG, 1X/DAY
     Route: 048
  2. CHANTIX [Suspect]
     Indication: SMOKING CESSATION THERAPY
     Dosage: 0.5 MG, 1X/DAY
     Route: 048
     Dates: start: 20101101, end: 20101101
  3. PERCOCET [Suspect]
     Indication: PAIN
     Dosage: 5/325 MG, AS NEEDED
     Route: 048
     Dates: end: 20101127
  4. GLIPIZIDE [Concomitant]
     Indication: DIABETES MELLITUS
     Dosage: 10 MG, 1X/DAY
     Route: 048
  5. LISINOPRIL [Concomitant]
     Indication: HYPERTENSION
     Dosage: 40 MG, 1X/DAY
     Route: 048
  6. ZOCOR [Concomitant]
     Dosage: 20 MG, 1X/DAY AT BEDTIME
     Route: 048
  7. CHANTIX [Suspect]
     Dosage: 1 MG, 2X/DAY
     Dates: start: 20101101
  8. LORTAB [Concomitant]
     Dosage: UNK, 1 TAB EVERY 6 HRS
     Route: 048
  9. METFORMIN [Concomitant]
     Indication: DIABETES MELLITUS
     Dosage: 1000 MG, 2X/DAY
     Route: 048
  10. CYMBALTA [Concomitant]
     Dosage: 30 MG, 3 CAPSULE ONCE A DAY
     Route: 048
  11. PERCOCET [Suspect]
     Dosage: 10/325 MG, AS NEEDED
     Route: 048
     Dates: start: 20101001, end: 20101127

REACTIONS (1)
  - DRUG INEFFECTIVE [None]
